FAERS Safety Report 19020539 (Version 1)
Quarter: 2021Q1

REPORT INFORMATION
  Report Type: Spontaneous
  Country: US (occurrence: US)
  Receive Date: 20210317
  Receipt Date: 20210317
  Transmission Date: 20210420
  Serious: No
  Sender: FDA-Public Use
  Company Number: US-PFIZER INC-2021257869

PATIENT
  Age: 41 Year
  Sex: Female

DRUGS (3)
  1. EXEMESTANE. [Concomitant]
     Active Substance: EXEMESTANE
  2. IBRANCE [Suspect]
     Active Substance: PALBOCICLIB
     Indication: BREAST CANCER FEMALE
     Dosage: 100 MG, CYCLIC(DAILY, 21 DAYS, 7 DAYS OFF)
     Route: 048
     Dates: start: 20201125
  3. CLARITINE [Concomitant]
     Active Substance: LORATADINE

REACTIONS (2)
  - Fatigue [Recovered/Resolved]
  - Stomatitis [Recovered/Resolved]
